FAERS Safety Report 22092759 (Version 1)
Quarter: 2023Q1

REPORT INFORMATION
  Report Type: Spontaneous
  Country: FR (occurrence: FR)
  Receive Date: 20230314
  Receipt Date: 20230314
  Transmission Date: 20230417
  Serious: Yes (Other)
  Sender: FDA-Public Use
  Company Number: None

PATIENT
  Sex: Male
  Weight: 3 kg

DRUGS (2)
  1. KEPPRA [Suspect]
     Active Substance: LEVETIRACETAM
     Indication: Epilepsy
     Dosage: 1SP MORNING AND EVENING
     Route: 048
     Dates: start: 2009
  2. VIMPAT [Suspect]
     Active Substance: LACOSAMIDE
     Indication: Epilepsy
     Dosage: 1SP MORNING AND EVENING
     Route: 048
     Dates: start: 202004

REACTIONS (4)
  - Joint laxity [Not Recovered/Not Resolved]
  - Jaundice neonatal [Recovered/Resolved]
  - Dolichocephaly [Not Recovered/Not Resolved]
  - Off label use [Unknown]

NARRATIVE: CASE EVENT DATE: 20090101
